FAERS Safety Report 16069253 (Version 1)
Quarter: 2019Q1

REPORT INFORMATION
  Report Type: Spontaneous
  Country: DE (occurrence: DE)
  Receive Date: 20190313
  Receipt Date: 20190313
  Transmission Date: 20190418
  Serious: Yes (Life-Threatening, Hospitalization)
  Sender: FDA-Public Use
  Company Number: PHHY2019DE055528

PATIENT
  Sex: Female
  Weight: 8 kg

DRUGS (4)
  1. HCT [Concomitant]
     Active Substance: HYDROCHLOROTHIAZIDE
     Indication: PRODUCT USED FOR UNKNOWN INDICATION
     Dosage: 16 MG, QD (DAILY DOSE: 16 MG MILLGRAAM(S) EVERY DAYS)
     Route: 065
     Dates: start: 20180808
  2. ESOMEPRAZOLE. [Concomitant]
     Active Substance: ESOMEPRAZOLE MAGNESIUM
     Indication: PRODUCT USED FOR UNKNOWN INDICATION
     Dosage: 16 MG, QD (DAILY DOSE: 16 MG MILLGRAM(S) EVERY DAYS)
     Route: 065
     Dates: start: 20180314, end: 20181227
  3. METOPROLOL. [Concomitant]
     Active Substance: METOPROLOL
     Indication: PRODUCT USED FOR UNKNOWN INDICATION
     Dosage: 6 MG, QD (DAILY DOSE: 6 MG MILLGRAM(S) EVERY DAYS)
     Route: 065
     Dates: start: 20180314, end: 20181227
  4. ASPIRIN. [Suspect]
     Active Substance: ASPIRIN
     Indication: ANTIPLATELET THERAPY
     Dosage: 25 MG, QD (DAILY DOSE: 25 MG MILLGRAM(S) EVERY DAYS)
     Route: 065
     Dates: start: 20180808, end: 20181227

REACTIONS (3)
  - Haemoptysis [Recovered/Resolved]
  - Oesophageal varices haemorrhage [Recovered/Resolved]
  - Haematemesis [Recovered/Resolved]

NARRATIVE: CASE EVENT DATE: 20181224
